FAERS Safety Report 10074960 (Version 1)
Quarter: 2014Q2

REPORT INFORMATION
  Report Type: Spontaneous
  Country: US (occurrence: US)
  Receive Date: 20140414
  Receipt Date: 20140414
  Transmission Date: 20141212
  Serious: No
  Sender: FDA-Public Use
  Company Number: US-BIOGENIDEC-2014BI027853

PATIENT
  Age: 57 Year
  Sex: Female

DRUGS (2)
  1. TECFIDERA [Suspect]
     Indication: MULTIPLE SCLEROSIS
     Route: 048
  2. TECFIDERA [Suspect]
     Indication: MULTIPLE SCLEROSIS
     Dates: start: 20140306

REACTIONS (15)
  - Gastric disorder [Recovered/Resolved]
  - Eye swelling [Recovered/Resolved]
  - Swelling face [Recovered/Resolved]
  - Swollen tongue [Recovered/Resolved]
  - Hypersensitivity [Recovered/Resolved]
  - Sensation of foreign body [Recovered/Resolved]
  - Aphagia [Recovered/Resolved]
  - Lip swelling [Recovered/Resolved]
  - Decreased appetite [Recovered/Resolved]
  - Nausea [Recovered/Resolved]
  - Diarrhoea [Recovered/Resolved]
  - Flushing [Recovered/Resolved]
  - Abdominal pain [Recovered/Resolved]
  - Feeling hot [Recovered/Resolved]
  - Erythema [Recovered/Resolved]
